FAERS Safety Report 6441771-2 (Version None)
Quarter: 2009Q4

REPORT INFORMATION
  Report Type: 
  Country: None (occurrence: None)
  Receive Date: 20091116
  Receipt Date: 20091104
  Transmission Date: 20100525
  Serious: Yes (Death, Hospitalization)
  Sender: FDA-Public Use
  Company Number: ES-PFIZER INC-2008070107

PATIENT
  Age: 64 Year
  Sex: Male
  Weight: 61 kg

DRUGS (14)
  1. *ERLOTINIB [Suspect]
     Indication: NON-SMALL CELL LUNG CANCER
     Dosage: 150 MG, 1X/DAY
     Route: 048
     Dates: start: 20080718, end: 20080818
  2. BLINDED *NO SUBJECT DRUG [Suspect]
     Indication: NON-SMALL CELL LUNG CANCER
     Dosage: 37.5 MG, 1X/DAY
     Route: 048
     Dates: start: 20080718, end: 20080818
  3. BLINDED *PLACEBO [Suspect]
     Indication: NON-SMALL CELL LUNG CANCER
     Dosage: 37.5 MG, 1X/DAY
     Route: 048
     Dates: start: 20080718, end: 20080818
  4. BLINDED SUNITINIB MALATE [Suspect]
     Indication: NON-SMALL CELL LUNG CANCER
     Dosage: 37.5 MG, 1X/DAY
     Route: 048
     Dates: start: 20080718, end: 20080818
  5. VOLTAREN [Concomitant]
     Dates: start: 20080401
  6. ENALAPRIL [Concomitant]
     Dates: start: 20080401
  7. OMEPRAZOLE [Concomitant]
     Dates: start: 20080401
  8. MEGESTROL ACETATE [Concomitant]
     Dates: start: 20080701
  9. LORAZEPAM [Concomitant]
     Dates: start: 20080701
  10. FENTANYL-100 [Concomitant]
     Dates: start: 20080601
  11. METFORMIN HCL [Concomitant]
     Dates: start: 20080701
  12. ALPRAZOLAM [Concomitant]
     Dates: start: 20070101
  13. SERTRALINE HCL [Concomitant]
     Dates: start: 20070101
  14. MIRTAZAPINE [Concomitant]
     Dates: start: 20080801

REACTIONS (3)
  - ATAXIA [None]
  - DISEASE PROGRESSION [None]
  - NON-SMALL CELL LUNG CANCER [None]
